FAERS Safety Report 11257916 (Version 1)
Quarter: 2015Q3

REPORT INFORMATION
  Report Type: Spontaneous
  Country: US (occurrence: None)
  Receive Date: 20150708
  Receipt Date: 20150708
  Transmission Date: 20151125
  Serious: No
  Sender: FDA-Public Use
  Company Number: None

PATIENT
  Age: 43 Year
  Sex: Female
  Weight: 120.2 kg

DRUGS (7)
  1. PROTONIX [Concomitant]
     Active Substance: PANTOPRAZOLE SODIUM
  2. PRENATAL VITAMIN [Concomitant]
     Active Substance: VITAMINS
  3. SERTRALINE [Concomitant]
     Active Substance: SERTRALINE HYDROCHLORIDE
  4. MAGNESIUM [Concomitant]
     Active Substance: MAGNESIUM
  5. VITAMIN D [Concomitant]
     Active Substance: CHOLECALCIFEROL
  6. METFORMIN HCL ER [Suspect]
     Active Substance: METFORMIN HYDROCHLORIDE
     Indication: POLYCYSTIC OVARIES
     Dosage: 4 PILLS
     Route: 054
     Dates: start: 20150702, end: 20150707
  7. FISH OIL [Concomitant]
     Active Substance: FISH OIL

REACTIONS (5)
  - Headache [None]
  - Feeling abnormal [None]
  - Blood pressure increased [None]
  - Peripheral swelling [None]
  - Product substitution issue [None]

NARRATIVE: CASE EVENT DATE: 20150703
